FAERS Safety Report 4347443-2 (Version None)
Quarter: 2004Q2

REPORT INFORMATION
  Report Type: 
  Country: None (occurrence: None)
  Receive Date: 20040422
  Receipt Date: 20040406
  Transmission Date: 20050107
  Serious: Yes (Death)
  Sender: FDA-Public Use
  Company Number: 2004AP01504

PATIENT
  Age: 25 Year
  Sex: Female

DRUGS (8)
  1. SEROQUEL [Suspect]
     Indication: SCHIZOPHRENIA
     Dosage: 500 MG DAILY PO
     Route: 048
     Dates: start: 20020430
  2. LINTON [Concomitant]
  3. TAMSULOSIN [Concomitant]
  4. LEVOTOMIN [Concomitant]
  5. PROPITAN [Concomitant]
  6. FLUNITRAZEPAM [Concomitant]
  7. BENZALIN [Concomitant]
  8. SENNOSIDE [Concomitant]

REACTIONS (2)
  - CARDIO-RESPIRATORY ARREST [None]
  - SUDDEN DEATH [None]
